FAERS Safety Report 8029683-4 (Version None)
Quarter: 2012Q1

REPORT INFORMATION
  Report Type: 
  Country: None (occurrence: None)
  Receive Date: 20120109
  Receipt Date: 20120103
  Transmission Date: 20120608
  Serious: Yes (Other)
  Sender: FDA-Public Use
  Company Number: AU-PFIZER INC-2011288920

PATIENT
  Sex: Female

DRUGS (5)
  1. XALATAN [Suspect]
     Indication: GLAUCOMA
     Dosage: 1 GTT NOCTE, 1X/DAY
     Route: 047
     Dates: start: 20111118, end: 20111119
  2. LIPITOR [Concomitant]
     Indication: BLOOD CHOLESTEROL INCREASED
     Dosage: ONCE DAILY
     Route: 048
     Dates: start: 20080101
  3. AMLODIPINE [Concomitant]
     Indication: BLOOD PRESSURE
     Dosage: ONCE DAILY
     Route: 048
     Dates: start: 20080101
  4. ESCITALOPRAM [Concomitant]
     Indication: DEPRESSION
     Dosage: ONCE DAILY
     Route: 048
     Dates: start: 20080101
  5. LASIX-M [Concomitant]
     Indication: HYPERTENSION
     Dosage: ONCE DAILY
     Route: 048
     Dates: start: 20080101

REACTIONS (3)
  - EYELID PAIN [None]
  - HERPES ZOSTER [None]
  - EYELID OEDEMA [None]
